FAERS Safety Report 6624865-8 (Version None)
Quarter: 2010Q1

REPORT INFORMATION
  Report Type: 
  Country: None (occurrence: None)
  Receive Date: 20100223
  Receipt Date: 20091116
  Transmission Date: 20100710
  Serious: No
  Sender: FDA-Public Use
  Company Number: 8054867

PATIENT
  Sex: Female

DRUGS (1)
  1. CERTOLIZUMAB PEGOL (UCB, INC) [Suspect]
     Dosage: MONTHLY ONCE MONTHLY SUBCUTANEOUS
     Route: 058

REACTIONS (1)
  - MUSCLE SPASMS [None]
